FAERS Safety Report 4837774-1 (Version None)
Quarter: 2005Q4

REPORT INFORMATION
  Report Type: 
  Country: None (occurrence: None)
  Receive Date: 20051128
  Receipt Date: 20051007
  Transmission Date: 20060501
  Serious: Yes (Hospitalization)
  Sender: FDA-Public Use
  Company Number: US-MERCK-0510USA05618

PATIENT
  Age: 52 Year
  Sex: Female
  Weight: 88 kg

DRUGS (8)
  1. VIOXX [Suspect]
     Indication: ARTHRITIS
     Route: 048
     Dates: start: 20031110, end: 20040901
  2. PAXIL [Concomitant]
     Indication: DEPRESSION
     Route: 048
     Dates: start: 20000101
  3. ASPIRIN [Concomitant]
     Route: 048
  4. VITAMINS (UNSPECIFIED) [Concomitant]
     Route: 065
  5. PRAVACHOL [Concomitant]
     Route: 048
  6. CARDIZEM [Concomitant]
     Route: 048
  7. LISINOPRIL [Concomitant]
     Route: 048
  8. TRICOR [Concomitant]
     Route: 048

REACTIONS (7)
  - ABDOMINAL PAIN [None]
  - CORONARY ARTERY DISEASE [None]
  - DEPRESSION [None]
  - HYPERLIPIDAEMIA [None]
  - HYPERTENSION [None]
  - INTRAOCULAR PRESSURE INCREASED [None]
  - MYOCARDIAL INFARCTION [None]
